FAERS Safety Report 18854750 (Version 1)
Quarter: 2021Q1

REPORT INFORMATION
  Report Type: Spontaneous
  Country: CN (occurrence: CN)
  Receive Date: 20210205
  Receipt Date: 20210205
  Transmission Date: 20210420
  Serious: Yes (Other)
  Sender: FDA-Public Use
  Company Number: CN-ELI_LILLY_AND_COMPANY-CN202101010656

PATIENT
  Age: 7 Year

DRUGS (3)
  1. STRATTERA [Suspect]
     Active Substance: ATOMOXETINE HYDROCHLORIDE
     Dosage: 25 MG, DAILY
     Route: 048
     Dates: start: 20201130, end: 20201206
  2. STRATTERA [Suspect]
     Active Substance: ATOMOXETINE HYDROCHLORIDE
     Dosage: 30 MG, DAILY
     Route: 048
     Dates: start: 20201207
  3. STRATTERA [Suspect]
     Active Substance: ATOMOXETINE HYDROCHLORIDE
     Indication: PSYCHOMOTOR HYPERACTIVITY
     Dosage: 10 MG, DAILY
     Route: 048
     Dates: start: 20201123, end: 20201129

REACTIONS (1)
  - Hepatitis B surface antigen positive [Unknown]

NARRATIVE: CASE EVENT DATE: 20210124
